FAERS Safety Report 17497116 (Version 2)
Quarter: 2020Q1

REPORT INFORMATION
  Report Type: Spontaneous
  Country: US (occurrence: US)
  Receive Date: 20200304
  Receipt Date: 20200320
  Transmission Date: 20200409
  Serious: Yes (Hospitalization)
  Sender: FDA-Public Use
  Company Number: US-CELGENEUS-USA-20200210434

PATIENT
  Age: 76 Year
  Sex: Male
  Weight: 80.7 kg

DRUGS (47)
  1. MULTIVITAMIN [Concomitant]
     Active Substance: VITAMINS
     Indication: SUPPLEMENTATION THERAPY
     Route: 048
     Dates: start: 20190226
  2. ACETAMINOPHEN. [Concomitant]
     Active Substance: ACETAMINOPHEN
     Indication: SPINAL COMPRESSION FRACTURE
     Dosage: 650 MILLIGRAM
     Route: 048
     Dates: start: 20191126, end: 20200115
  3. LIDOCAINE. [Concomitant]
     Active Substance: LIDOCAINE
     Indication: SPINAL COMPRESSION FRACTURE
     Dosage: 10 PERCENT
     Route: 048
     Dates: start: 20191127
  4. LIDOCAINE. [Concomitant]
     Active Substance: LIDOCAINE
     Indication: BACK PAIN
  5. ISAVUCONAZOLE [Concomitant]
     Active Substance: ISAVUCONAZOLE
     Indication: ANTIFUNGAL PROPHYLAXIS
     Dosage: 372 MILLIGRAM
     Route: 048
     Dates: start: 20191202
  6. DOCUSATE SODIUM. [Concomitant]
     Active Substance: DOCUSATE SODIUM
     Indication: CONSTIPATION PROPHYLAXIS
     Dosage: 200 MILLIGRAM
     Route: 048
     Dates: start: 20191127
  7. TRAMADOL HCL [Concomitant]
     Active Substance: TRAMADOL HYDROCHLORIDE
     Indication: BACK PAIN
  8. FILGRASTIM [Concomitant]
     Active Substance: FILGRASTIM
     Indication: LEUKOPENIA
     Dosage: 480 UG
     Route: 058
     Dates: start: 20190830, end: 20190903
  9. FILGRASTIM [Concomitant]
     Active Substance: FILGRASTIM
     Dosage: 480 UG
     Route: 058
     Dates: start: 20191105, end: 20191105
  10. FILGRASTIM [Concomitant]
     Active Substance: FILGRASTIM
     Dosage: 480 UG
     Route: 058
     Dates: start: 20191114, end: 20191114
  11. LORATADINE. [Concomitant]
     Active Substance: LORATADINE
     Indication: ALLERGY PROPHYLAXIS
     Dosage: 10 MILLIGRAM
     Route: 048
     Dates: start: 20180703
  12. VITAMIN E [Concomitant]
     Active Substance: .ALPHA.-TOCOPHEROL
     Indication: SUPPLEMENTATION THERAPY
     Dosage: 700 IU
     Route: 048
     Dates: start: 2018
  13. VITAMIN C [Concomitant]
     Active Substance: ASCORBIC ACID
     Indication: SUPPLEMENTATION THERAPY
     Dosage: 1000 MILLIGRAM
     Route: 048
     Dates: start: 2018
  14. FILGRASTIM [Concomitant]
     Active Substance: FILGRASTIM
     Dosage: 480 UG
     Route: 058
     Dates: start: 20190930, end: 20190930
  15. FLUTICASONE. [Concomitant]
     Active Substance: FLUTICASONE
     Indication: ALLERGY PROPHYLAXIS
     Dosage: 10 MILLIGRAM
     Route: 048
     Dates: start: 20180703
  16. TRAMADOL HCL [Concomitant]
     Active Substance: TRAMADOL HYDROCHLORIDE
     Indication: SPINAL COMPRESSION FRACTURE
     Dosage: 50 MILLIGRAM
     Route: 048
     Dates: start: 20191203
  17. FILGRASTIM [Concomitant]
     Active Substance: FILGRASTIM
     Dosage: 480 UG
     Route: 058
     Dates: start: 20191102, end: 20191102
  18. FILGRASTIM [Concomitant]
     Active Substance: FILGRASTIM
     Dosage: 480 UG
     Route: 058
     Dates: start: 20191214, end: 20191214
  19. VENETOCLAX. [Concomitant]
     Active Substance: VENETOCLAX
     Indication: MYELODYSPLASTIC SYNDROME
     Dosage: 200 MILLIGRAM
     Route: 048
     Dates: start: 20190730
  20. METOPROLOL TARTRATE. [Concomitant]
     Active Substance: METOPROLOL TARTRATE
     Indication: HYPERTENSION
     Dosage: 25 MILLIGRAM
     Route: 048
     Dates: start: 20180705
  21. METOPROLOL SUCCINATE. [Concomitant]
     Active Substance: METOPROLOL SUCCINATE
     Indication: HYPERTENSION
     Dosage: 100 MILLIGRAM
     Route: 048
     Dates: start: 20180705, end: 20200218
  22. EMLA [Concomitant]
     Active Substance: LIDOCAINE\PRILOCAINE
     Indication: PAIN PROPHYLAXIS
     Dosage: 2.5-2.5
     Route: 061
     Dates: start: 20190807
  23. HEPARIN [Concomitant]
     Active Substance: HEPARIN SODIUM
     Indication: CATHETER MANAGEMENT
     Dosage: 500 UNIT
     Route: 041
     Dates: start: 20190826
  24. VITAMIN D [Concomitant]
     Active Substance: VITAMIN D NOS
     Indication: OSTEOPOROSIS
  25. POTASSIUM-SODIUM PHOSPHATE [Concomitant]
     Indication: HYPOPHOSPHATAEMIA
  26. FILGRASTIM [Concomitant]
     Active Substance: FILGRASTIM
     Dosage: 480 UG
     Route: 058
     Dates: start: 20191219, end: 20191219
  27. FILGRASTIM [Concomitant]
     Active Substance: FILGRASTIM
     Dosage: 480 UG
     Route: 058
     Dates: start: 20200127, end: 20200127
  28. FUROSEMIDE. [Concomitant]
     Active Substance: FUROSEMIDE
     Indication: OEDEMA
     Dosage: 80 MILLIGRAM
     Route: 048
     Dates: start: 20190903, end: 20200303
  29. OMEPRAZOLE. [Concomitant]
     Active Substance: OMEPRAZOLE
     Indication: GASTROOESOPHAGEAL REFLUX DISEASE
     Dosage: 40 MILLIGRAM
     Route: 048
     Dates: start: 20190907
  30. ACETAMINOPHEN. [Concomitant]
     Active Substance: ACETAMINOPHEN
     Indication: BACK PAIN
  31. BISACODYL. [Concomitant]
     Active Substance: BISACODYL
     Indication: CONSTIPATION PROPHYLAXIS
     Dosage: 5 MILLIGRAM
     Route: 048
     Dates: start: 20191203
  32. POTASSIUM-SODIUM PHOSPHATE [Concomitant]
     Indication: SUPPLEMENTATION THERAPY
     Dosage: 280-160-250 MG
     Route: 048
     Dates: start: 20200121
  33. FILGRASTIM [Concomitant]
     Active Substance: FILGRASTIM
     Dosage: 480 UG
     Route: 058
     Dates: start: 20191226, end: 20191226
  34. POLYETHYLENE [Concomitant]
     Active Substance: HIGH DENSITY POLYETHYLENE
     Indication: CONSTIPATION
     Dosage: 17 GRAM
     Route: 048
     Dates: start: 20191125
  35. ISAVUCONAZOLE [Concomitant]
     Active Substance: ISAVUCONAZOLE
     Indication: BACK PAIN
  36. ACYCLOVIR. [Concomitant]
     Active Substance: ACYCLOVIR
     Indication: ANTIFUNGAL PROPHYLAXIS
     Dosage: 800 MILLIGRAM
     Route: 048
     Dates: start: 20191127
  37. FILGRASTIM [Concomitant]
     Active Substance: FILGRASTIM
     Dosage: 480 UG
     Route: 058
     Dates: start: 20191003, end: 20191003
  38. AZACITIDINE. [Suspect]
     Active Substance: AZACITIDINE
     Indication: MYELODYSPLASTIC SYNDROME
     Dosage: 160 MILLIGRAM
     Route: 041
     Dates: start: 20190730
  39. POTASSIUM CHLORIDE. [Concomitant]
     Active Substance: POTASSIUM CHLORIDE
     Indication: SUPPLEMENTATION THERAPY
     Dosage: 20 MILLIEQUIVALENTS
     Route: 048
     Dates: start: 20180821
  40. PROCHLORPERAZINE. [Concomitant]
     Active Substance: PROCHLORPERAZINE
     Indication: PROPHYLAXIS OF NAUSEA AND VOMITING
     Dosage: 5-10 MG
     Route: 048
     Dates: start: 20191115
  41. VITAMIN D [Concomitant]
     Active Substance: VITAMIN D NOS
     Indication: SUPPLEMENTATION THERAPY
     Dosage: 5000 IU
     Route: 048
     Dates: start: 20200115
  42. FILGRASTIM [Concomitant]
     Active Substance: FILGRASTIM
     Dosage: 480 UG
     Route: 058
     Dates: start: 20191010, end: 20191010
  43. MAGNESIUM [Concomitant]
     Active Substance: MAGNESIUM
     Indication: SUPPLEMENTATION THERAPY
     Dosage: 120 MILLIGRAM
     Route: 048
     Dates: start: 20190226, end: 20200217
  44. AMIODARONE [Concomitant]
     Active Substance: AMIODARONE
     Indication: SUPRAVENTRICULAR TACHYCARDIA
     Dosage: 1000 MILLIGRAM
     Route: 048
     Dates: start: 20190918
  45. FILGRASTIM [Concomitant]
     Active Substance: FILGRASTIM
     Dosage: 480 UG
     Route: 058
     Dates: start: 20191223, end: 20191223
  46. FILGRASTIM [Concomitant]
     Active Substance: FILGRASTIM
     Dosage: 480 UG
     Route: 058
     Dates: start: 20200113, end: 20200113
  47. FILGRASTIM [Concomitant]
     Active Substance: FILGRASTIM
     Dosage: 480 UG
     Route: 058
     Dates: start: 20200122, end: 20200122

REACTIONS (1)
  - Influenza [Recovered/Resolved]

NARRATIVE: CASE EVENT DATE: 20200217
